FAERS Safety Report 25654154 (Version 2)
Quarter: 2025Q4

REPORT INFORMATION
  Report Type: Spontaneous
  Country: GB (occurrence: GB)
  Receive Date: 20250807
  Receipt Date: 20251029
  Transmission Date: 20260118
  Serious: Yes (Death, Hospitalization, Other)
  Sender: MYLAN
  Company Number: GB-MYLANLABS-2025M1049022

PATIENT
  Sex: Female

DRUGS (1)
  1. CLOZARIL [Suspect]
     Active Substance: CLOZAPINE
     Indication: Schizophrenia
     Dosage: UNK, BID (75 MILLIGRAM MORNING AND 375 MILLIGRAM AT NIGHT)
     Dates: start: 20061215

REACTIONS (4)
  - Brain neoplasm malignant [Fatal]
  - Head and neck cancer [Fatal]
  - Fall [Unknown]
  - Terminal state [Unknown]
